FAERS Safety Report 12099117 (Version 1)
Quarter: 2016Q1

REPORT INFORMATION
  Report Type: Spontaneous
  Country: US (occurrence: US)
  Receive Date: 20160222
  Receipt Date: 20160222
  Transmission Date: 20160526
  Serious: Yes (Other)
  Sender: FDA-Public Use
  Company Number: US-ELI_LILLY_AND_COMPANY-US201602003697

PATIENT
  Age: 74 Year
  Sex: Male

DRUGS (4)
  1. HUMALOG [Suspect]
     Active Substance: INSULIN LISPRO
     Dosage: UNK, TID
     Route: 065
  2. HUMALOG [Suspect]
     Active Substance: INSULIN LISPRO
     Indication: TYPE 1 DIABETES MELLITUS
     Dosage: UNK, TID
     Route: 065
     Dates: start: 1954
  3. LEVEMIR [Concomitant]
     Active Substance: INSULIN DETEMIR
     Route: 065
  4. DEXCON [Concomitant]
     Route: 065

REACTIONS (3)
  - Drug ineffective [Unknown]
  - Myocardial infarction [Unknown]
  - Blood glucose increased [Unknown]

NARRATIVE: CASE EVENT DATE: 1996
